FAERS Safety Report 8377915-5 (Version None)
Quarter: 2012Q2

REPORT INFORMATION
  Report Type: 
  Country: None (occurrence: None)
  Receive Date: 20120522
  Receipt Date: 20120508
  Transmission Date: 20120825
  Serious: Yes (Hospitalization, Other)
  Sender: FDA-Public Use
  Company Number: US-ELI_LILLY_AND_COMPANY-US201205002942

PATIENT
  Sex: Female
  Weight: 85.714 kg

DRUGS (5)
  1. VERAPAMIL [Concomitant]
     Indication: MIGRAINE
     Dosage: UNK UNK, UNKNOWN
     Dates: end: 20110801
  2. LYRICA [Concomitant]
     Indication: FIBROMYALGIA
     Dosage: 150 MG, BID
     Dates: start: 20080101
  3. SYNTHROID [Concomitant]
     Indication: THYROIDECTOMY
     Dosage: 200 UG, 6/W
  4. SYNTHROID [Concomitant]
     Dosage: 300 UG, WEEKLY (1/W)
  5. CYMBALTA [Suspect]
     Indication: DEPRESSION
     Dosage: 120 MG, QD

REACTIONS (18)
  - FORMICATION [None]
  - PANIC REACTION [None]
  - OEDEMA [None]
  - URINARY INCONTINENCE [None]
  - PLATELET COUNT INCREASED [None]
  - CONVERSION DISORDER [None]
  - DEPRESSION [None]
  - MUSCLE SPASMS [None]
  - DRUG DOSE OMISSION [None]
  - SUICIDAL IDEATION [None]
  - PSYCHOTIC DISORDER [None]
  - COLD SWEAT [None]
  - THINKING ABNORMAL [None]
  - BRADYPHRENIA [None]
  - ANXIETY [None]
  - ALANINE AMINOTRANSFERASE INCREASED [None]
  - NIGHTMARE [None]
  - CATATONIA [None]
